FAERS Safety Report 5926851-X (Version None)
Quarter: 2008Q4

REPORT INFORMATION
  Report Type: 
  Country: None (occurrence: None)
  Receive Date: 20081022
  Receipt Date: 20081010
  Transmission Date: 20090506
  Serious: Yes (Other)
  Sender: FDA-Public Use
  Company Number: ES-GILEAD-2008-0018125

PATIENT
  Age: 40 Year
  Sex: Male

DRUGS (5)
  1. VIREAD [Suspect]
  2. RIBAVIRIN [Suspect]
     Dates: start: 20061101
  3. EMTRIVA [Concomitant]
  4. EFAVIRENZ [Concomitant]
  5. PEG-INTRON [Concomitant]
     Dates: start: 20061101

REACTIONS (9)
  - AIDS RELATED COMPLICATION [None]
  - ANAEMIA [None]
  - DRUG INTERACTION [None]
  - HEPATITIS C VIRUS TEST [None]
  - METABOLIC ACIDOSIS [None]
  - NEPHROPATHY [None]
  - NEPHROPATHY TOXIC [None]
  - RENAL FAILURE [None]
  - RENAL TUBULAR DISORDER [None]
